FAERS Safety Report 8528769-5 (Version None)
Quarter: 2012Q3

REPORT INFORMATION
  Report Type: 
  Country: None (occurrence: None)
  Receive Date: 20120723
  Receipt Date: 20120710
  Transmission Date: 20120928
  Serious: Yes (Life-Threatening, Other)
  Sender: FDA-Public Use
  Company Number: JP-SP-2012-05753

PATIENT
  Sex: Male
  Weight: 52 kg

DRUGS (2)
  1. LEVOFLOXACIN [Concomitant]
     Indication: PALLIATIVE CARE
     Dates: start: 20120319, end: 20120508
  2. IMMUCYST [Suspect]
     Indication: BLADDER CANCER
     Route: 043
     Dates: start: 20120319, end: 20120508

REACTIONS (5)
  - HEPATIC FUNCTION ABNORMAL [None]
  - DECREASED APPETITE [None]
  - SPLENIC ABSCESS [None]
  - WHITE BLOOD CELL COUNT DECREASED [None]
  - PYREXIA [None]
